FAERS Safety Report 24720857 (Version 1)
Quarter: 2024Q4

REPORT INFORMATION
  Report Type: Spontaneous
  Country: SK (occurrence: SK)
  Receive Date: 20241211
  Receipt Date: 20241211
  Transmission Date: 20250115
  Serious: Yes (Other)
  Sender: RANBAXY
  Company Number: SK-SUN PHARMACEUTICAL INDUSTRIES LTD-2024R1-483649

PATIENT
  Age: 41 Year
  Sex: Female
  Weight: 63 kg

DRUGS (11)
  1. QUETIAPINE [Suspect]
     Active Substance: QUETIAPINE
     Indication: Bipolar II disorder
     Dosage: UNK (200-400 MG Q.D. (NIGHTLY))
     Route: 065
     Dates: start: 201901
  2. QUETIAPINE [Suspect]
     Active Substance: QUETIAPINE
     Dosage: UNK (300 MG Q.D. (NIGHTLY))
     Route: 065
  3. QUETIAPINE [Suspect]
     Active Substance: QUETIAPINE
     Dosage: UNK (800 MG NIGHTLY)
     Route: 065
     Dates: end: 202301
  4. QUETIAPINE [Suspect]
     Active Substance: QUETIAPINE
     Dosage: UNK (SR 400 MG NIGHTLY)
     Route: 065
  5. INSULIN LISPRO [Concomitant]
     Active Substance: INSULIN LISPRO
     Indication: Type 1 diabetes mellitus
     Dosage: UNK (30-40 IU/DAY)
     Route: 065
     Dates: start: 201901, end: 202301
  6. LEVOTHYROXINE [Concomitant]
     Active Substance: LEVOTHYROXINE
     Indication: Primary hypothyroidism
     Dosage: UNK (100-125 MCG Q.D)
     Route: 065
     Dates: start: 201901, end: 202301
  7. LEVOTHYROXINE [Concomitant]
     Active Substance: LEVOTHYROXINE
     Dosage: UNK (125 MCG Q.D.)
     Route: 065
  8. BISOPROLOL [Concomitant]
     Active Substance: BISOPROLOL
     Indication: Hypertension
     Dosage: 5 MILLIGRAM, QD
     Route: 065
     Dates: start: 201901, end: 202301
  9. ARIPIPRAZOLE [Concomitant]
     Active Substance: ARIPIPRAZOLE
     Indication: Product used for unknown indication
     Dosage: UNK (10-30 MG Q.D.)
     Route: 065
     Dates: start: 201901, end: 2021
  10. ALPHA LIPOIC ACID [Concomitant]
     Active Substance: .ALPHA.-LIPOIC ACID
     Indication: Diabetic neuropathy
     Dosage: 600 MILLIGRAM, QD
     Route: 065
  11. BENFOTIAMINE [Concomitant]
     Active Substance: BENFOTIAMINE
     Indication: Diabetic neuropathy
     Dosage: 300 MILLIGRAM, QD
     Route: 065

REACTIONS (1)
  - Hyperglycaemia [Recovering/Resolving]
